FAERS Safety Report 10243554 (Version 1)
Quarter: 2014Q2

REPORT INFORMATION
  Report Type: Spontaneous
  Country: NL (occurrence: None)
  Receive Date: 20140616
  Receipt Date: 20140616
  Transmission Date: 20141212
  Serious: Yes (Death, Hospitalization)
  Sender: FDA-Public Use
  Company Number: ABR_01680_2014

PATIENT
  Age: 31 Year
  Sex: Male

DRUGS (2)
  1. AMPHETAMINE [Suspect]
     Indication: PRODUCT USED FOR UNKNOWN INDICATION
     Dosage: SPEED, ONCE RESPIRATORY (INHALATION)), (3-4 TIMES PER MONTH RESPIRATORY (INHALATION))
  2. CAPSAICIN [Suspect]
     Indication: PRODUCT USED FOR UNKNOWN INDICATION
     Dosage: (DF)

REACTIONS (15)
  - Cardiac arrest [None]
  - Contusion [None]
  - Hypothermia [None]
  - Hypotension [None]
  - Abnormal behaviour [None]
  - Suicidal behaviour [None]
  - Loss of consciousness [None]
  - Ischaemia [None]
  - Metabolic acidosis [None]
  - Cardiac arrest [None]
  - Haemodynamic instability [None]
  - Cardiac failure [None]
  - Arteriospasm coronary [None]
  - Cardiotoxicity [None]
  - Arrhythmia [None]
